FAERS Safety Report 21093251 (Version 1)
Quarter: 2022Q3

REPORT INFORMATION
  Report Type: Spontaneous
  Country: US (occurrence: None)
  Receive Date: 20220715
  Receipt Date: 20220715
  Transmission Date: 20221026
  Serious: No
  Sender: FDA-Public Use
  Company Number: None

PATIENT
  Sex: Male

DRUGS (1)
  1. STELARA [Suspect]
     Active Substance: USTEKINUMAB
     Indication: Psoriasis
     Dosage: OTHER FREQUENCY : EVERY12WEEK;?
     Route: 058
     Dates: start: 20220213

REACTIONS (4)
  - Drug ineffective [None]
  - Skin disorder [None]
  - Erythema [None]
  - Skin disorder [None]
